FAERS Safety Report 17209084 (Version 1)
Quarter: 2019Q4

REPORT INFORMATION
  Report Type: Spontaneous
  Country: FR (occurrence: FR)
  Receive Date: 20191227
  Receipt Date: 20191227
  Transmission Date: 20200122
  Serious: Yes (Death)
  Sender: FDA-Public Use
  Company Number: FR-PFIZER INC-2019558183

PATIENT
  Age: 89 Year
  Sex: Male
  Weight: 60 kg

DRUGS (6)
  1. LASILIX [FUROSEMIDE] [Concomitant]
     Active Substance: FUROSEMIDE
     Dosage: 40 MG 2 TABLETS IN THE MORNING ONE AT LUNCH TIME
  2. CORDARONE [Concomitant]
     Active Substance: AMIODARONE HYDROCHLORIDE
     Dosage: 200 MG, 1X/DAY IN THE MORNING
  3. ELIQUIS [Concomitant]
     Active Substance: APIXABAN
     Dosage: 1 DF, 2X/DAY (IN THE MORNING AND IN THE EVENING)
  4. MODOPAR [Concomitant]
     Active Substance: BENSERAZIDE HYDROCHLORIDE\LEVODOPA
     Dosage: 1 DF, 2X/DAY (100/ 25 MG TAKEN AT 1 TABLET IN THE MORNING AND IN THE EVENING)
  5. VYNDAQEL [Suspect]
     Active Substance: TAFAMIDIS MEGLUMINE
     Dosage: 20 MG, DAILY
  6. XATRAL [ALFUZOSIN] [Concomitant]
     Dosage: 10 MG, 1X/DAY IN THE MORNING

REACTIONS (1)
  - Death [Fatal]

NARRATIVE: CASE EVENT DATE: 20191211
